FAERS Safety Report 16422413 (Version 1)
Quarter: 2019Q2

REPORT INFORMATION
  Report Type: Spontaneous
  Country: US (occurrence: US)
  Receive Date: 20190612
  Receipt Date: 20190612
  Transmission Date: 20190711
  Serious: Yes (Other)
  Sender: FDA-Public Use
  Company Number: US-PFIZER INC-2019249188

PATIENT
  Age: 73 Year
  Sex: Female
  Weight: 76.2 kg

DRUGS (4)
  1. BOSULIF [Suspect]
     Active Substance: BOSUTINIB MONOHYDRATE
     Dosage: 500 MG, ALTERNATE DAY, [500 MG BY MOUTH EVERY OTHER DAY]
     Route: 048
     Dates: start: 20190521
  2. VALSARTAN. [Concomitant]
     Active Substance: VALSARTAN
     Indication: BLOOD PRESSURE ABNORMAL
     Dosage: UNK, DAILY (160/12 MG DAILY)
  3. PRAVASTATIN. [Concomitant]
     Active Substance: PRAVASTATIN
     Indication: BLOOD CHOLESTEROL
     Dosage: 20 MG, DAILY
  4. BOSULIF [Suspect]
     Active Substance: BOSUTINIB MONOHYDRATE
     Indication: CHRONIC MYELOID LEUKAEMIA
     Dosage: UNK, DAILY

REACTIONS (9)
  - Asthenia [Recovering/Resolving]
  - Decreased appetite [Unknown]
  - Malaise [Unknown]
  - Dehydration [Not Recovered/Not Resolved]
  - Diarrhoea [Recovered/Resolved]
  - Loss of consciousness [Recovered/Resolved with Sequelae]
  - Pericardial effusion [Unknown]
  - Pleural effusion [Unknown]
  - Fatigue [Recovering/Resolving]

NARRATIVE: CASE EVENT DATE: 20190521
